FAERS Safety Report 20516189 (Version 3)
Quarter: 2022Q2

REPORT INFORMATION
  Report Type: Report from Study
  Country: IT (occurrence: IT)
  Receive Date: 20220225
  Receipt Date: 20220415
  Transmission Date: 20220721
  Serious: Yes (Other)
  Sender: FDA-Public Use
  Company Number: None

PATIENT
  Age: 61 Year
  Sex: Female
  Weight: 63 kg

DRUGS (7)
  1. CISPLATIN [Suspect]
     Active Substance: CISPLATIN
     Indication: Non-small cell lung cancer stage IV
     Dosage: UNIT DOSE 75 MG,
     Route: 042
     Dates: start: 20210526, end: 20210728
  2. ALIMTA [Suspect]
     Active Substance: PEMETREXED DISODIUM
     Indication: Non-small cell lung cancer stage IV
     Dosage: UNIT DOSE 500MG
     Route: 042
     Dates: start: 20210526, end: 20220118
  3. KEYTRUDA [Suspect]
     Active Substance: PEMBROLIZUMAB
     Indication: Non-small cell lung cancer stage IV
     Dosage: KEYTRUDA 50 MG POWDER FOR CONCENTRATE FOR SOLUTION FOR INFUSION,UNIT DOSE 200MG
     Route: 042
     Dates: start: 20210526, end: 20211013
  4. MICARDIS [Concomitant]
     Active Substance: TELMISARTAN
     Indication: Hypertension
     Dosage: MICARDIS 40 MG TABLETS, 40 MG
     Route: 048
  5. MODURETIC 5-50 [Concomitant]
     Active Substance: AMILORIDE HYDROCHLORIDE\HYDROCHLOROTHIAZIDE
     Indication: Hypertension
     Dosage: MODURETIC 5 MG + 50 MG TABLETS, UNIT DOSE: 55 MG
     Route: 048
  6. BECLOMETHASONE DIPROPIONATE\FORMOTEROL FUMARATE\GLYCOPYRROLATE [Concomitant]
     Active Substance: BECLOMETHASONE DIPROPIONATE\FORMOTEROL FUMARATE\GLYCOPYRROLATE
     Indication: Chronic obstructive pulmonary disease
     Dosage: TRIMBOW 87 MICROGRAMS/5 MICROGRAMS/9 MICROGRAMS PRESSURISED INHALATION
     Route: 055
  7. FOLINA [Concomitant]
     Indication: Anaemia
     Dosage: FOLINA 5 MG SOFT CAPSULES, UNIT DOSE: 5 MG
     Route: 048

REACTIONS (2)
  - Skin toxicity [Recovered/Resolved with Sequelae]
  - Rash papular [Recovered/Resolved with Sequelae]

NARRATIVE: CASE EVENT DATE: 20211103
